FAERS Safety Report 5613167-4 (Version None)
Quarter: 2008Q1

REPORT INFORMATION
  Report Type: 
  Country: None (occurrence: None)
  Receive Date: 20080129
  Receipt Date: 20080118
  Transmission Date: 20080703
  Serious: Yes (Death)
  Sender: FDA-Public Use
  Company Number: 2008S1001023

PATIENT
  Age: 43 Year
  Sex: Female

DRUGS (10)
  1. FLUOXETINE [Suspect]
     Indication: ANXIETY
     Dosage: 20 MG; DAILY; ORAL
     Route: 048
     Dates: start: 20071019, end: 20071118
  2. FLUOXETINE [Suspect]
     Indication: DEPRESSION
     Dosage: 20 MG; DAILY; ORAL
     Route: 048
     Dates: start: 20071019, end: 20071118
  3. TRAZODONE HCL [Concomitant]
  4. PERCOCET [Concomitant]
  5. SEROQUEL [Concomitant]
  6. NEURONTIN [Concomitant]
  7. ALPRAZOLAM [Concomitant]
  8. IBUPROFEN [Concomitant]
  9. CYMBALTA [Concomitant]
  10. LAMICTAL [Concomitant]

REACTIONS (4)
  - COMPLETED SUICIDE [None]
  - FEAR [None]
  - GUN SHOT WOUND [None]
  - HEAD INJURY [None]
